APPROVED DRUG PRODUCT: GLIPIZIDE
Active Ingredient: GLIPIZIDE
Strength: 10MG
Dosage Form/Route: TABLET;ORAL
Application: A077820 | Product #002
Applicant: SUN PHARMACEUTICAL INDUSTRIES INC
Approved: Jul 11, 2006 | RLD: No | RS: No | Type: DISCN